FAERS Safety Report 24176963 (Version 1)
Quarter: 2024Q3

REPORT INFORMATION
  Report Type: Spontaneous
  Country: US (occurrence: US)
  Receive Date: 20240806
  Receipt Date: 20240806
  Transmission Date: 20241017
  Serious: Yes (Death)
  Sender: LEO PHARM
  Company Number: US-LEO Pharma-372485

PATIENT
  Age: 80 Year
  Sex: Male

DRUGS (1)
  1. ADBRY [Suspect]
     Active Substance: TRALOKINUMAB-LDRM
     Indication: Dermatitis atopic
     Dosage: EXPIRATION DATE ASKED BUT UNKNOWN
     Dates: start: 20240517

REACTIONS (1)
  - Death [Fatal]
